FAERS Safety Report 6100356-8 (Version None)
Quarter: 2009Q1

REPORT INFORMATION
  Report Type: 
  Country: None (occurrence: None)
  Receive Date: 20090303
  Receipt Date: 20090224
  Transmission Date: 20090719
  Serious: Yes (Death, Hospitalization, Other)
  Sender: FDA-Public Use
  Company Number: US-ELI_LILLY_AND_COMPANY-US200810001764

PATIENT
  Sex: Male
  Weight: 64.853 kg

DRUGS (12)
  1. CYMBALTA [Suspect]
     Indication: PAIN
     Dosage: 30 MG, DAILY (1/D)
     Dates: start: 20080928, end: 20081002
  2. CLONIDINE [Concomitant]
     Indication: BLOOD PRESSURE INCREASED
     Dosage: UNK, UNK
     Dates: start: 20080101
  3. OXYCODONE [Concomitant]
     Dosage: 10 MG, 2/D
  4. TORADOL [Concomitant]
     Dosage: 60 MG, UNK
  5. ENOXAPARIN SODIUM [Concomitant]
     Dosage: 30 MG, DAILY (1/D)
     Route: 058
  6. FINASTERIDE [Concomitant]
     Dosage: 5 MG, DAILY (1/D)
     Route: 048
  7. LISINOPRIL [Concomitant]
     Dosage: 10 MG, DAILY (1/D)
     Route: 048
  8. ATORVASTATIN [Concomitant]
     Dosage: 20 MG, DAILY (1/D)
     Route: 048
  9. MULTI-VITAMINS [Concomitant]
  10. PANTOPRAZOLE [Concomitant]
     Dosage: 40 MG, DAILY (1/D)
     Route: 048
  11. ACETAMINOPHEN AND HYDROCODONE BITARTRATE [Concomitant]
  12. ATENOLOL [Concomitant]

REACTIONS (5)
  - BLOOD PRESSURE DECREASED [None]
  - BLOOD PRESSURE INCREASED [None]
  - CARDIOGENIC SHOCK [None]
  - COMA [None]
  - MYOCARDIAL INFARCTION [None]
